FAERS Safety Report 11834023 (Version 1)
Quarter: 2015Q4

REPORT INFORMATION
  Report Type: Spontaneous
  Country: FR (occurrence: FR)
  Receive Date: 20151214
  Receipt Date: 20151214
  Transmission Date: 20160305
  Serious: Yes (Other)
  Sender: FDA-Public Use
  Company Number: FR-GILEAD-2015-0186438

PATIENT
  Age: 35 Year
  Sex: Female

DRUGS (5)
  1. PREZISTA [Suspect]
     Active Substance: DARUNAVIR ETHANOLATE
     Indication: OFF LABEL USE
     Dosage: 800 MG, QD
     Route: 048
     Dates: start: 20151006, end: 20151019
  2. HBVAXPRO [Concomitant]
     Active Substance: HEPATITIS B VIRUS VACCINE
     Indication: PROPHYLAXIS
     Dosage: UNK
     Dates: start: 20151005, end: 20151005
  3. TRUVADA [Suspect]
     Active Substance: EMTRICITABINE\TENOFOVIR DISOPROXIL FUMARATE
     Indication: OFF LABEL USE
     Dosage: UNK
     Route: 048
     Dates: start: 20151005, end: 20151019
  4. DAKIN                              /00166003/ [Concomitant]
     Indication: PROPHYLAXIS
     Dosage: UNK
     Dates: start: 20151005, end: 20151005
  5. NORVIR [Suspect]
     Active Substance: RITONAVIR
     Indication: OFF LABEL USE
     Dosage: 100 MG, QD
     Route: 048
     Dates: start: 20151006, end: 20151019

REACTIONS (3)
  - Exposure during pregnancy [Unknown]
  - Rash pruritic [Recovering/Resolving]
  - Off label use [Unknown]

NARRATIVE: CASE EVENT DATE: 20151019
